FAERS Safety Report 11645591 (Version 1)
Quarter: 2015Q4

REPORT INFORMATION
  Report Type: Spontaneous
  Country: FR (occurrence: FR)
  Receive Date: 20151020
  Receipt Date: 20151020
  Transmission Date: 20160304
  Serious: Yes (Other)
  Sender: FDA-Public Use
  Company Number: FR-TEVA-599938ISR

PATIENT
  Age: 18 Year
  Sex: Male

DRUGS (14)
  1. PREDNISOLONE. [Suspect]
     Active Substance: PREDNISOLONE
     Dosage: 60 MG/M2 DAILY;
     Route: 048
     Dates: start: 20150327, end: 20150430
  2. METHOTREXATE [Suspect]
     Active Substance: METHOTREXATE
     Dosage: ONGOING
     Route: 037
     Dates: start: 20150407
  3. CYTARABINE EG [Suspect]
     Active Substance: CYTARABINE
     Route: 037
     Dates: start: 20150407, end: 20150722
  4. TEGRETOL [Concomitant]
     Active Substance: CARBAMAZEPINE
     Dosage: 420 GRAM DAILY; LONG-STANDING TREATMENT - ONGOING
     Route: 048
  5. VINCRISTINE TEVA [Suspect]
     Active Substance: VINCRISTINE
     Route: 041
     Dates: start: 20150403, end: 20150424
  6. ERWINASE 10000 U [Suspect]
     Active Substance: ASPARAGINASE ERWINIA CHRYSANTHEMI
     Dosage: ONGOING
     Route: 041
     Dates: start: 20150604
  7. METHYLPREDNISOLONE MYLAN [Suspect]
     Active Substance: METHYLPREDNISOLONE
     Route: 037
     Dates: start: 20150407, end: 20150722
  8. UROMITEXAN [Suspect]
     Active Substance: MESNA
     Route: 040
     Dates: start: 20150519, end: 20150616
  9. RISPERDAL [Concomitant]
     Active Substance: RISPERIDONE
     Dosage: 2 DOSAGE FORMS DAILY; LONG-STANDING TREATMENT - ONGOING
     Route: 048
  10. DAUNORUBICINE [Suspect]
     Active Substance: DAUNORUBICIN
     Route: 041
     Dates: start: 20150403, end: 20150424
  11. KIDROLASE [Suspect]
     Active Substance: ASPARAGINASE
     Route: 041
     Dates: start: 20150407, end: 20150430
  12. ENDOXAN [Suspect]
     Active Substance: CYCLOPHOSPHAMIDE
     Dosage: 2000 MILLIGRAM DAILY;
     Route: 041
     Dates: start: 20150519, end: 20150616
  13. PURINETHOL [Suspect]
     Active Substance: MERCAPTOPURINE
     Dosage: 120 MILLIGRAM DAILY;
     Route: 048
     Dates: start: 20150519, end: 20150616
  14. ARACYTINE [Suspect]
     Active Substance: CYTARABINE
     Dosage: 85.7143 MILLIGRAM DAILY;
     Route: 041
     Dates: start: 20150522, end: 20150702

REACTIONS (1)
  - Ejection fraction decreased [Not Recovered/Not Resolved]

NARRATIVE: CASE EVENT DATE: 20150706
